FAERS Safety Report 15429995 (Version 1)
Quarter: 2018Q3

REPORT INFORMATION
  Report Type: Spontaneous
  Country: US (occurrence: US)
  Receive Date: 20180920
  Receipt Date: 20180920
  Transmission Date: 20181010
  Serious: No
  Sender: FDA-Public Use
  Company Number: None

PATIENT
  Age: 57 Year
  Sex: Female

DRUGS (1)
  1. VOSEVI [Suspect]
     Active Substance: SOFOSBUVIR\VELPATASVIR\VOXILAPREVIR
     Indication: CHRONIC HEPATITIS C
     Dates: start: 201808

REACTIONS (5)
  - Decreased appetite [None]
  - Headache [None]
  - Nausea [None]
  - Substance use [None]
  - Fatigue [None]

NARRATIVE: CASE EVENT DATE: 20180919
